FAERS Safety Report 18087786 (Version 2)
Quarter: 2024Q2

REPORT INFORMATION
  Report Type: Report from Study
  Country: US (occurrence: US)
  Receive Date: 20200729
  Receipt Date: 20240613
  Transmission Date: 20240716
  Serious: Yes (Other)
  Sender: FDA-Public Use
  Company Number: US-GW PHARMA-202007USGW02625

PATIENT

DRUGS (4)
  1. EPIDIOLEX [Suspect]
     Active Substance: CANNABIDIOL
     Indication: Seizure
     Dosage: 450 MILLIGRAM, QD (2 MG AM AND 2.5 MG PM)
     Dates: start: 2019
  2. EPIDIOLEX [Suspect]
     Active Substance: CANNABIDIOL
     Indication: Lennox-Gastaut syndrome
     Dosage: 3 MILLILITER, BID
     Route: 048
  3. EPIDIOLEX [Suspect]
     Active Substance: CANNABIDIOL
     Indication: Epilepsy
  4. SABRIL [Suspect]
     Active Substance: VIGABATRIN
     Indication: Product used for unknown indication
     Dosage: UNK

REACTIONS (3)
  - Seizure [Unknown]
  - Seizure [Unknown]
  - Drug ineffective [Unknown]
